FAERS Safety Report 9347354 (Version 2)
Quarter: 2013Q3

REPORT INFORMATION
  Report Type: Report from Study
  Country: US (occurrence: US)
  Receive Date: 20130613
  Receipt Date: 20130911
  Transmission Date: 20140515
  Serious: Yes (Other)
  Sender: FDA-Public Use
  Company Number: US-US-EMD SERONO, INC.-7215686

PATIENT
  Age: 39 Year
  Sex: Female

DRUGS (2)
  1. REBIF [Suspect]
     Indication: MULTIPLE SCLEROSIS
     Route: 058
     Dates: start: 20130409
  2. REBIF [Suspect]
     Route: 058
     Dates: start: 20130530, end: 20130613

REACTIONS (5)
  - Loss of consciousness [Recovered/Resolved]
  - Hallucination [Recovered/Resolved]
  - Hypersensitivity [Recovered/Resolved]
  - Multiple sclerosis relapse [Unknown]
  - Liver function test abnormal [Unknown]
